FAERS Safety Report 6772785-0 (Version None)
Quarter: 2010Q2

REPORT INFORMATION
  Report Type: 
  Country: None (occurrence: None)
  Receive Date: 20100616
  Receipt Date: 20100603
  Transmission Date: 20101027
  Serious: Yes (Death, Hospitalization, Other)
  Sender: FDA-Public Use
  Company Number: IT-ELI_LILLY_AND_COMPANY-IT201006001291

PATIENT
  Sex: Male

DRUGS (4)
  1. ZYPREXA [Suspect]
     Indication: BIPOLAR DISORDER
     Dosage: 10 MG, DAILY (1/D)
     Route: 048
     Dates: start: 20100101, end: 20100208
  2. DELORAZEPAM [Concomitant]
     Indication: BIPOLAR DISORDER
     Dosage: 52 D/F, DAILY (1/D)
     Route: 048
     Dates: start: 20100101, end: 20100208
  3. CARBOLITHIUM [Concomitant]
     Indication: BIPOLAR DISORDER
     Dosage: 600 MG, DAILY (1/D)
     Route: 048
     Dates: start: 20100101, end: 20100208
  4. TEGRETOL [Concomitant]
     Indication: BIPOLAR DISORDER
     Dosage: 400 MG, DAILY (1/D)
     Route: 048
     Dates: start: 20100101, end: 20100208

REACTIONS (5)
  - ANTIPSYCHOTIC DRUG LEVEL INCREASED [None]
  - COMA [None]
  - GASTROINTESTINAL DISORDER [None]
  - HYPERPYREXIA [None]
  - INCREASED BRONCHIAL SECRETION [None]
